FAERS Safety Report 14005327 (Version 6)
Quarter: 2024Q2

REPORT INFORMATION
  Report Type: Other
  Country: FR (occurrence: FR)
  Receive Date: 20170923
  Receipt Date: 20240409
  Transmission Date: 20240715
  Serious: Yes (Life-Threatening)
  Sender: FDA-Public Use
  Company Number: FR-002147023-PHHY2017FR136927

PATIENT
  Age: 42 Year
  Sex: Female
  Weight: 60 kg

DRUGS (2)
  1. XOLAIR [Suspect]
     Active Substance: OMALIZUMAB
     Indication: Chronic spontaneous urticaria
     Dosage: 2 DF (150 MG),
     Route: 058
     Dates: start: 20170908, end: 20170908
  2. BILASTINE [Concomitant]
     Active Substance: BILASTINE
     Indication: Product used for unknown indication
     Dosage: BID (LONG TERM)
     Route: 065

REACTIONS (9)
  - Anaphylactic reaction [Recovered/Resolved]
  - Palatal oedema [Recovered/Resolved]
  - Urticaria [Recovered/Resolved]
  - Oropharyngeal spasm [Unknown]
  - Pruritus [Recovered/Resolved]
  - Oedema [Unknown]
  - Injection site oedema [Recovered/Resolved]
  - Rash [Unknown]
  - Urticaria [Recovered/Resolved]

NARRATIVE: CASE EVENT DATE: 20170908
